FAERS Safety Report 6698525-1 (Version None)
Quarter: 2010Q2

REPORT INFORMATION
  Report Type: 
  Country: None (occurrence: None)
  Receive Date: 20100427
  Receipt Date: 20100416
  Transmission Date: 20101027
  Serious: Yes (Other)
  Sender: FDA-Public Use
  Company Number: US-SANOFI-AVENTIS-2010SA022743

PATIENT

DRUGS (1)
  1. LANTUS [Suspect]
     Route: 058

REACTIONS (1)
  - PERIPHERAL ISCHAEMIA [None]
